FAERS Safety Report 13050710 (Version 1)
Quarter: 2016Q4

REPORT INFORMATION
  Report Type: Spontaneous
  Country: CA (occurrence: CA)
  Receive Date: 20161221
  Receipt Date: 20161221
  Transmission Date: 20170207
  Serious: Yes (Other)
  Sender: FDA-Public Use
  Company Number: CA-PFIZER INC-2016584399

PATIENT
  Sex: Female

DRUGS (1)
  1. METHOTREXATE SODIUM. [Suspect]
     Active Substance: METHOTREXATE SODIUM
     Indication: PLACENTA ACCRETA
     Dosage: 50 MG/M2, UNK (ON 3RD POSTPARTUM)
     Route: 030

REACTIONS (3)
  - Vaginal haemorrhage [Unknown]
  - Pyrexia [Unknown]
  - Endometritis [Unknown]
